FAERS Safety Report 13384410 (Version 1)
Quarter: 2017Q1

REPORT INFORMATION
  Report Type: Report from Study
  Country: US (occurrence: US)
  Receive Date: 20170329
  Receipt Date: 20170329
  Transmission Date: 20170429
  Serious: Yes (Hospitalization, Other)
  Sender: FDA-Public Use
  Company Number: US-BRISTOL-MYERS SQUIBB COMPANY-BMS-2017-024587

PATIENT
  Age: 62 Year
  Sex: Male
  Weight: 95.69 kg

DRUGS (1)
  1. BELATACEPT [Suspect]
     Active Substance: BELATACEPT
     Indication: PROGRESSIVE MULTIFOCAL LEUKOENCEPHALOPATHY
     Dosage: UNK
     Route: 065
     Dates: start: 201606, end: 201608

REACTIONS (4)
  - Renal vein thrombosis [Unknown]
  - Graft loss [Not Recovered/Not Resolved]
  - Packed red blood cell transfusion [Unknown]
  - Haemodialysis [Unknown]

NARRATIVE: CASE EVENT DATE: 20160806
